FAERS Safety Report 25413948 (Version 1)
Quarter: 2025Q2

REPORT INFORMATION
  Report Type: Spontaneous
  Country: US (occurrence: None)
  Receive Date: 20250608
  Receipt Date: 20250608
  Transmission Date: 20250717
  Serious: Yes (Disabling, Other)
  Sender: FDA-CTU
  Company Number: None

PATIENT
  Age: 29 Year
  Sex: Female
  Weight: 78.75 kg

DRUGS (3)
  1. PROZAC [Suspect]
     Active Substance: FLUOXETINE HYDROCHLORIDE
     Indication: Generalised anxiety disorder
     Dates: start: 20240308, end: 20250509
  2. PROZAC [Suspect]
     Active Substance: FLUOXETINE HYDROCHLORIDE
     Indication: Social anxiety disorder
  3. Hydroxyzine 10mg [Concomitant]

REACTIONS (32)
  - Panic reaction [None]
  - Anxiety [None]
  - Tremor [None]
  - Chest discomfort [None]
  - Restlessness [None]
  - Muscle rigidity [None]
  - Heart rate increased [None]
  - Feeling hot [None]
  - Hyperhidrosis [None]
  - Flushing [None]
  - Chills [None]
  - Vomiting [None]
  - Diarrhoea [None]
  - Insomnia [None]
  - Loss of consciousness [None]
  - Fatigue [None]
  - Therapy interrupted [None]
  - Serotonin syndrome [None]
  - Akathisia [None]
  - Dizziness [None]
  - Head discomfort [None]
  - Brain fog [None]
  - Constipation [None]
  - Intrusive thoughts [None]
  - Merycism [None]
  - Skin burning sensation [None]
  - Palpitations [None]
  - Chest pain [None]
  - Throat tightness [None]
  - Headache [None]
  - Suicidal ideation [None]
  - Somatic symptom disorder [None]

NARRATIVE: CASE EVENT DATE: 20240409
